FAERS Safety Report 7811201-4 (Version None)
Quarter: 2011Q4

REPORT INFORMATION
  Report Type: 
  Country: None (occurrence: None)
  Receive Date: 20111013
  Receipt Date: 20111004
  Transmission Date: 20120403
  Serious: Yes (Hospitalization, Other)
  Sender: FDA-Public Use
  Company Number: TW-GENZYME-CERZ-1002260

PATIENT
  Sex: Male
  Weight: 10.7 kg

DRUGS (2)
  1. CEREZYME [Suspect]
     Indication: GAUCHER'S DISEASE
     Dosage: 60 U/KG, QOW
     Route: 042
  2. CEREZYME [Suspect]
     Dosage: 120 IU, Q4W
     Route: 042
     Dates: start: 20090605

REACTIONS (4)
  - COUGH [None]
  - LYMPHADENOPATHY [None]
  - EPSTEIN-BARR VIRUS INFECTION [None]
  - RHINORRHOEA [None]
